FAERS Safety Report 19259476 (Version 3)
Quarter: 2021Q2

REPORT INFORMATION
  Report Type: Spontaneous
  Country: IN (occurrence: IN)
  Receive Date: 20210514
  Receipt Date: 20210528
  Transmission Date: 20210717
  Serious: Yes (Death)
  Sender: FDA-Public Use
  Company Number: IN-PFIZER INC-2020275563

PATIENT
  Age: 58 Year
  Sex: Female
  Weight: 65 kg

DRUGS (1)
  1. CRIZALK [Suspect]
     Active Substance: CRIZOTINIB
     Indication: NON-SMALL CELL LUNG CANCER
     Dosage: 250 MG, 2X/DAY
     Route: 048
     Dates: start: 20170301

REACTIONS (2)
  - Death [Fatal]
  - Neoplasm progression [Unknown]

NARRATIVE: CASE EVENT DATE: 20200915
